FAERS Safety Report 23423128 (Version 1)
Quarter: 2024Q1

REPORT INFORMATION
  Report Type: Spontaneous
  Country: PL (occurrence: PL)
  Receive Date: 20240119
  Receipt Date: 20240119
  Transmission Date: 20240410
  Serious: Yes (Other)
  Sender: FDA-Public Use
  Company Number: PL-BAUSCH-BL-2024-000704

PATIENT
  Age: 71 Year
  Sex: Male

DRUGS (9)
  1. DEXAMETHASONE [Suspect]
     Active Substance: DEXAMETHASONE
     Indication: Eagle^s syndrome
     Route: 065
  2. DEXAMETHASONE [Suspect]
     Active Substance: DEXAMETHASONE
     Indication: Neuromuscular blocking therapy
  3. LIDOCAINE [Suspect]
     Active Substance: LIDOCAINE
     Indication: Eagle^s syndrome
     Dosage: 5 ML 1% LIDOCAINE
     Route: 065
  4. LIDOCAINE [Suspect]
     Active Substance: LIDOCAINE
     Indication: Neuromuscular blocking therapy
  5. PREGABALIN [Concomitant]
     Active Substance: PREGABALIN
     Indication: Temporomandibular joint syndrome
     Dosage: PREGABALIN AT 75 MG, 1 TAB. BEFORE GOING TO BED.
     Route: 065
  6. PREGABALIN [Concomitant]
     Active Substance: PREGABALIN
     Dosage: 150 MG BEFORE GOING TO BED AFTER ONE WEEK (WITH INCREASED DOSES DEPENDING ON TOLERABILITY)
     Route: 065
  7. NAPROXEN [Concomitant]
     Active Substance: NAPROXEN
     Indication: Temporomandibular joint syndrome
     Route: 065
  8. BACLOFEN [Concomitant]
     Active Substance: BACLOFEN
     Indication: Temporomandibular joint syndrome
     Dosage: BACLOFEN 10 MG 1/2 TAB.
     Route: 065
  9. BACLOFEN [Concomitant]
     Active Substance: BACLOFEN
     Dosage: BEFORE GOING TO BED AFTER ONE WEEK.
     Route: 065

REACTIONS (1)
  - Inadequate analgesia [Recovered/Resolved]
